FAERS Safety Report 8389935-5 (Version None)
Quarter: 2012Q2

REPORT INFORMATION
  Report Type: 
  Country: None (occurrence: None)
  Receive Date: 20120516
  Receipt Date: 20120502
  Transmission Date: 20120825
  Serious: Yes (Hospitalization)
  Sender: FDA-Public Use
  Company Number: WAES 1001USA00594

PATIENT
  Age: 48 Year
  Sex: Female
  Weight: 53.978 kg

DRUGS (4)
  1. TRAZODONE HCL [Concomitant]
  2. ISENTRESS [Suspect]
     Indication: HIV INFECTION
     Dosage: 400 MG, BID, PO
     Route: 048
     Dates: start: 20090915
  3. TRUVADA [Suspect]
     Indication: HIV INFECTION
     Dosage: 500 MG, DAILY, PO
     Route: 048
     Dates: start: 20090915
  4. COCAINE [Concomitant]

REACTIONS (12)
  - STRESS FRACTURE [None]
  - THROMBOPHLEBITIS SUPERFICIAL [None]
  - IMMUNE RECONSTITUTION SYNDROME [None]
  - COUGH [None]
  - BACK PAIN [None]
  - HIP FRACTURE [None]
  - DEEP VEIN THROMBOSIS [None]
  - PARAESTHESIA [None]
  - VENA CAVA THROMBOSIS [None]
  - LYMPHADENOPATHY [None]
  - HYPOAESTHESIA [None]
  - FAECAL INCONTINENCE [None]
